FAERS Safety Report 24294512 (Version 2)
Quarter: 2025Q1

REPORT INFORMATION
  Report Type: Spontaneous
  Country: RU (occurrence: RU)
  Receive Date: 20240906
  Receipt Date: 20250307
  Transmission Date: 20250409
  Serious: Yes (Other)
  Sender: VERTEX
  Company Number: None

PATIENT
  Age: 17 Year
  Sex: Male
  Weight: 64 kg

DRUGS (5)
  1. ORKAMBI [Suspect]
     Active Substance: IVACAFTOR\LUMACAFTOR
     Indication: Cystic fibrosis
     Dosage: 1 TABLET (200MG/125MG), BID
     Route: 048
     Dates: start: 202111
  2. Tigerase [Concomitant]
     Indication: Cystic fibrosis
     Dosage: 2.5 MG, QD (PER DAY)
  3. URSODIOL [Concomitant]
     Active Substance: URSODIOL
     Indication: Cystic fibrosis
     Route: 048
  4. ACETYLCYSTEINE [Concomitant]
     Active Substance: ACETYLCYSTEINE
     Indication: Cystic fibrosis
     Route: 048
  5. PANCRELIPASE [Concomitant]
     Active Substance: PANCRELIPASE
     Indication: Cystic fibrosis
     Route: 048

REACTIONS (3)
  - Drug ineffective [Unknown]
  - Productive cough [Not Recovered/Not Resolved]
  - Hepatic fibrosis [Not Recovered/Not Resolved]
